APPROVED DRUG PRODUCT: ROCURONIUM BROMIDE
Active Ingredient: ROCURONIUM BROMIDE
Strength: 50MG/5ML (10MG/ML)
Dosage Form/Route: INJECTABLE;INJECTION
Application: A219674 | Product #001 | TE Code: AP
Applicant: MANKIND PHARMA LTD
Approved: May 29, 2025 | RLD: No | RS: No | Type: RX